FAERS Safety Report 12299542 (Version 5)
Quarter: 2016Q4

REPORT INFORMATION
  Report Type: Report from Study
  Country: DE (occurrence: DE)
  Receive Date: 20160425
  Receipt Date: 20161012
  Transmission Date: 20170207
  Serious: Yes (Death, Other)
  Sender: FDA-Public Use
  Company Number: DE-BRISTOL-MYERS SQUIBB COMPANY-BMS-2016-031323

PATIENT
  Age: 92 Year
  Sex: Male
  Weight: 93 kg

DRUGS (1)
  1. APIXABAN [Suspect]
     Active Substance: APIXABAN
     Indication: CEREBROVASCULAR ACCIDENT PROPHYLAXIS
     Dosage: 2.5 MG, BID
     Route: 048
     Dates: start: 20130411, end: 20160329

REACTIONS (5)
  - Cardiac failure [Unknown]
  - Death [Fatal]
  - Haemoglobin decreased [Unknown]
  - General physical health deterioration [Unknown]
  - Packed red blood cell transfusion [Unknown]

NARRATIVE: CASE EVENT DATE: 20160328
